FAERS Safety Report 23561086 (Version 5)
Quarter: 2024Q2

REPORT INFORMATION
  Report Type: Spontaneous
  Country: CA (occurrence: CA)
  Receive Date: 20240224
  Receipt Date: 20240515
  Transmission Date: 20240715
  Serious: Yes (Hospitalization, Other)
  Sender: FDA-Public Use
  Company Number: CA-CELLTRION INC.-2024CA004426

PATIENT

DRUGS (5)
  1. INFLECTRA [Suspect]
     Active Substance: INFLIXIMAB-DYYB
     Indication: Sarcoidosis
     Dosage: 5 MG/KG, INDUCTION DOSES AT WEEK 0, 2 AND 6, THEN EVERY 4 WEEKS
     Route: 042
     Dates: start: 20220928
  2. INFLECTRA [Suspect]
     Active Substance: INFLIXIMAB-DYYB
     Dosage: 5 MG/KG, INDUCTION DOSES AT WEEK 0, 2 AND 6, THEN EVERY 4 WEEKS
     Route: 042
     Dates: start: 20240125
  3. INFLECTRA [Suspect]
     Active Substance: INFLIXIMAB-DYYB
     Dosage: 5 MG/KG (500MG), AFTER 14 WEEKS 6 DAYS (PRESCRIBED EVERY 4 WEEKS)
     Route: 042
     Dates: start: 20240508
  4. BACTRIM [Concomitant]
     Active Substance: SULFAMETHOXAZOLE\TRIMETHOPRIM
     Dosage: 1 DF, 3X/WEEK
     Route: 065
     Dates: start: 2021
  5. METHOTREXATE [Concomitant]
     Active Substance: METHOTREXATE
     Dosage: 25 MG, WEEKLY
     Route: 058
     Dates: start: 202104

REACTIONS (4)
  - Pancreatitis [Unknown]
  - Obstructive pancreatitis [Unknown]
  - Cholangitis [Unknown]
  - Cholecystitis infective [Recovered/Resolved]

NARRATIVE: CASE EVENT DATE: 20240201
